FAERS Safety Report 7336227-9 (Version None)
Quarter: 2011Q1

REPORT INFORMATION
  Report Type: 
  Country: None (occurrence: None)
  Receive Date: 20110307
  Receipt Date: 20110221
  Transmission Date: 20110831
  Serious: Yes (Death, Hospitalization)
  Sender: FDA-Public Use
  Company Number: JP-PFIZER INC-2011018902

PATIENT
  Age: 78 Year
  Sex: Female
  Weight: 52 kg

DRUGS (11)
  1. CAMPTOSAR [Suspect]
     Indication: GASTRIC CANCER
     Dosage: 140 MG/M2, 1X/DAY
     Route: 041
     Dates: start: 20101201, end: 20101201
  2. TS-1 [Suspect]
     Indication: GASTRIC CANCER
     Dosage: 50 MG, 2X/DAY
     Route: 048
     Dates: start: 20101201, end: 20101211
  3. GASTER [Concomitant]
     Indication: REFLUX OESOPHAGITIS
     Dosage: 20 MG, 2X/DAY
     Route: 041
     Dates: start: 20101212, end: 20101214
  4. AMINO ACIDS/ELECTROLYTES/GLUCOSE/VITAMINS [Concomitant]
     Dosage: 1000 ML, 2X/DAY
     Route: 041
     Dates: start: 20101206, end: 20101214
  5. NEOLAMIN 3B INJ. [Concomitant]
     Indication: NUTRITIONAL SUPPORT
     Dosage: 10 ML, UNK
     Route: 041
     Dates: start: 20101206, end: 20101214
  6. DECADRON [Concomitant]
     Indication: PREMEDICATION
     Dosage: 6.6 MG, UNK
     Route: 041
     Dates: start: 20101201, end: 20101201
  7. AMINO ACIDS/ELECTROLYTES/GLUCOSE/VITAMINS [Concomitant]
     Indication: HYPOPHAGIA
     Dosage: 500 ML, 1X/DAY
     Route: 041
     Dates: start: 20101206, end: 20101214
  8. AMINO ACIDS/ELECTROLYTES/GLUCOSE/VITAMINS [Concomitant]
     Dosage: 1000 ML, 1X/DAY
     Route: 041
     Dates: start: 20101206, end: 20101214
  9. FLUMARIN [Concomitant]
     Indication: PYREXIA
     Dosage: 1 G, 2X/DAY
     Route: 041
     Dates: start: 20101212, end: 20101214
  10. SEROTONE [Concomitant]
     Indication: PREMEDICATION
     Dosage: 10 MG, UNK
     Route: 041
     Dates: start: 20101201, end: 20101201
  11. TAKEPRON [Concomitant]
     Indication: REFLUX OESOPHAGITIS
     Dosage: 30 MG, UNK
     Route: 048
     Dates: end: 20101211

REACTIONS (10)
  - BLOOD PRESSURE DECREASED [None]
  - LEUKOPENIA [None]
  - DECREASED APPETITE [None]
  - THROMBOCYTOPENIA [None]
  - HYPERGLYCAEMIA [None]
  - CEREBRAL INFARCTION [None]
  - DIARRHOEA [None]
  - DEPRESSED LEVEL OF CONSCIOUSNESS [None]
  - PYREXIA [None]
  - GENERAL PHYSICAL HEALTH DETERIORATION [None]
